FAERS Safety Report 7679573-1 (Version None)
Quarter: 2011Q3

REPORT INFORMATION
  Report Type: 
  Country: None (occurrence: None)
  Receive Date: 20110812
  Receipt Date: 20110810
  Transmission Date: 20111222
  Serious: Yes (Other)
  Sender: FDA-Public Use
  Company Number: FR-BRISTOL-MYERS SQUIBB COMPANY-15705106

PATIENT
  Age: 64 Year
  Sex: Female

DRUGS (3)
  1. TAXOL [Suspect]
     Route: 042
     Dates: start: 20100401, end: 20100901
  2. GEMZAR [Suspect]
     Route: 042
     Dates: start: 20100401, end: 20100901
  3. METHOTREXATE [Suspect]
     Route: 042
     Dates: start: 20101011, end: 20110101

REACTIONS (3)
  - LEUKOENCEPHALOPATHY [None]
  - ATAXIA [None]
  - COGNITIVE DISORDER [None]
